FAERS Safety Report 7718875-7 (Version None)
Quarter: 2011Q3

REPORT INFORMATION
  Report Type: 
  Country: None (occurrence: None)
  Receive Date: 20110830
  Receipt Date: 20110824
  Transmission Date: 20111222
  Serious: Yes (Death)
  Sender: FDA-Public Use
  Company Number: GB-PFIZER INC-2011196371

PATIENT

DRUGS (1)
  1. ZYVOX [Suspect]

REACTIONS (2)
  - TOXIC SHOCK SYNDROME [None]
  - NECROTISING FASCIITIS [None]
